FAERS Safety Report 20911726 (Version 1)
Quarter: 2022Q2

REPORT INFORMATION
  Report Type: Spontaneous
  Country: US (occurrence: US)
  Receive Date: 20220603
  Receipt Date: 20220603
  Transmission Date: 20220720
  Serious: Yes (Other)
  Sender: FDA-Public Use
  Company Number: US-COLGATE PALMOLIVE COMPANY-20220501071

PATIENT
  Sex: Female

DRUGS (1)
  1. COLGATE TOTAL SF ADVANCED DEEP CLEAN [Suspect]
     Active Substance: STANNOUS FLUORIDE
     Dosage: UNKNOWN DOSE
     Dates: start: 202108, end: 202205

REACTIONS (7)
  - Tooth fracture [Unknown]
  - Dry skin [Not Recovered/Not Resolved]
  - Hypersensitivity [Unknown]
  - Rash [Unknown]
  - Erythema [Recovering/Resolving]
  - Lip dry [Not Recovered/Not Resolved]
  - Rash [Not Recovered/Not Resolved]

NARRATIVE: CASE EVENT DATE: 20210101
